FAERS Safety Report 8066825-9 (Version None)
Quarter: 2012Q1

REPORT INFORMATION
  Report Type: 
  Country: None (occurrence: None)
  Receive Date: 20120124
  Receipt Date: 20120106
  Transmission Date: 20120608
  Serious: Yes (Other)
  Sender: FDA-Public Use
  Company Number: CA-PFIZER INC-2011092751

PATIENT
  Sex: Female
  Weight: 59 kg

DRUGS (12)
  1. CELEBREX [Concomitant]
  2. ATIVAN [Concomitant]
     Dosage: 1 MG, UNK
     Dates: start: 20030101
  3. ENBREL [Suspect]
     Indication: POLYARTHRITIS
     Dosage: 25 MG, 2 TIMES/WK
     Route: 058
     Dates: start: 20031222
  4. ADALAT [Concomitant]
  5. CALCIUM [Concomitant]
  6. RABEPRAZOLE SODIUM [Concomitant]
  7. LIPITOR [Concomitant]
  8. RHOVANE [Concomitant]
  9. HYDROCYCLIN [Concomitant]
  10. PLAQUENIL [Concomitant]
     Dosage: UNK
     Dates: start: 20030101
  11. LYRICA [Suspect]
     Indication: NECK PAIN
     Dosage: 100 MG, UNK
     Dates: start: 20110315
  12. VITAMIN D [Concomitant]

REACTIONS (3)
  - VISUAL IMPAIRMENT [None]
  - NECK PAIN [None]
  - VISION BLURRED [None]
